FAERS Safety Report 5756472-3 (Version None)
Quarter: 2008Q2

REPORT INFORMATION
  Report Type: 
  Country: None (occurrence: None)
  Receive Date: 20080603
  Receipt Date: 20080529
  Transmission Date: 20081010
  Serious: Yes (Other)
  Sender: FDA-Public Use
  Company Number: BE-BAYER-200814157GPV

PATIENT
  Age: 53 Year
  Sex: Female

DRUGS (1)
  1. BETAFERON [Suspect]
     Indication: MULTIPLE SCLEROSIS
     Route: 065

REACTIONS (3)
  - BLOOD CREATININE INCREASED [None]
  - RENAL FAILURE [None]
  - THROMBOTIC MICROANGIOPATHY [None]
